FAERS Safety Report 6464426-7 (Version None)
Quarter: 2009Q4

REPORT INFORMATION
  Report Type: 
  Country: None (occurrence: None)
  Receive Date: 20091201
  Receipt Date: 20091119
  Transmission Date: 20100525
  Serious: Yes (Hospitalization)
  Sender: FDA-Public Use
  Company Number: US-ALEXION-A200900882

PATIENT
  Sex: Female

DRUGS (7)
  1. SOLIRIS [Suspect]
     Indication: PAROXYSMAL NOCTURNAL HAEMOGLOBINURIA
     Dosage: UNK
     Route: 042
     Dates: start: 20070101
  2. ARANESP [Concomitant]
     Indication: PAROXYSMAL NOCTURNAL HAEMOGLOBINURIA
     Dosage: UNK
  3. NEULASTA [Concomitant]
     Indication: PAROXYSMAL NOCTURNAL HAEMOGLOBINURIA
     Dosage: UNK
  4. SYNTHROID [Concomitant]
     Dosage: 75 UG, QD
     Route: 048
  5. RENAL VITAMIN [Concomitant]
     Dosage: UNK
     Route: 048
  6. VITAMIN E                          /00110501/ [Concomitant]
     Dosage: 400 IU, ON DIALYSIS DAYS
  7. LOPRESSOR [Concomitant]
     Dosage: 12.5 MG, QD (AT BEDTIME)
     Route: 048

REACTIONS (2)
  - LOWER RESPIRATORY TRACT INFECTION [None]
  - PANCYTOPENIA [None]
